FAERS Safety Report 23677398 (Version 3)
Quarter: 2024Q3

REPORT INFORMATION
  Report Type: Report from Study
  Country: US (occurrence: US)
  Receive Date: 20240327
  Receipt Date: 20240724
  Transmission Date: 20241017
  Serious: No
  Sender: SANDOZ
  Company Number: US-SANDOZ-SDZ2024US031821

PATIENT
  Sex: Male

DRUGS (2)
  1. OMNITROPE [Suspect]
     Active Substance: SOMATROPIN
     Indication: Growth hormone deficiency
     Dosage: UNK
     Route: 065
  2. OMNITROPE [Suspect]
     Active Substance: SOMATROPIN
     Indication: Growth hormone deficiency
     Dosage: UNK
     Route: 065

REACTIONS (2)
  - Device breakage [Unknown]
  - Drug dose omission by device [Unknown]
